FAERS Safety Report 7760232-1 (Version None)
Quarter: 2011Q3

REPORT INFORMATION
  Report Type: 
  Country: None (occurrence: None)
  Receive Date: 20110919
  Receipt Date: 20110913
  Transmission Date: 20111222
  Serious: Yes (Hospitalization)
  Sender: FDA-Public Use
  Company Number: US-GLAXOSMITHKLINE-A0944844A

PATIENT
  Age: 23 Year
  Sex: Male

DRUGS (1)
  1. ZOFRAN [Suspect]
     Dosage: 8MG UNKNOWN
     Route: 065
     Dates: start: 20110427

REACTIONS (1)
  - SURGERY [None]
